FAERS Safety Report 5477404-1 (Version None)
Quarter: 2007Q4

REPORT INFORMATION
  Report Type: 
  Country: None (occurrence: None)
  Receive Date: 20071004
  Receipt Date: 20070926
  Transmission Date: 20080405
  Serious: Yes (Other)
  Sender: FDA-Public Use
  Company Number: US-PFIZER INC-2007081049

PATIENT
  Sex: Male

DRUGS (1)
  1. DETROL [Suspect]

REACTIONS (2)
  - MULTIPLE MYELOMA [None]
  - RENAL IMPAIRMENT [None]
